FAERS Safety Report 9659460 (Version 2)
Quarter: 2013Q4

REPORT INFORMATION
  Report Type: Report from Study
  Country: TW (occurrence: TW)
  Receive Date: 20131031
  Receipt Date: 20131224
  Transmission Date: 20140711
  Serious: Yes (Other)
  Sender: FDA-Public Use
  Company Number: PHHY2013TW122963

PATIENT
  Age: 80 Year
  Sex: Male
  Weight: 51.5 kg

DRUGS (2)
  1. ACLASTA/ZOLEDRONATE [Suspect]
     Indication: OSTEOPOROSIS
     Dosage: 5 MG,
     Route: 042
     Dates: start: 20120618
  2. ACLASTA/ZOLEDRONATE [Suspect]
     Dosage: 5 MG,
     Route: 042
     Dates: start: 20130618

REACTIONS (3)
  - Embolism arterial [Recovering/Resolving]
  - Thrombosis [Recovering/Resolving]
  - Local swelling [Recovering/Resolving]
